FAERS Safety Report 6994131-X (Version None)
Quarter: 2010Q3

REPORT INFORMATION
  Report Type: 
  Country: None (occurrence: None)
  Receive Date: 20100917
  Receipt Date: 20100714
  Transmission Date: 20110219
  Serious: No
  Sender: FDA-Public Use
  Company Number: US-ASTRAZENECA-2010SE32759

PATIENT
  Age: 40 Year
  Sex: Female
  Weight: 79.4 kg

DRUGS (2)
  1. SEROQUEL [Suspect]
     Indication: BIPOLAR DISORDER
     Route: 048
     Dates: start: 20060101
  2. ADDERALL 10 [Concomitant]

REACTIONS (6)
  - CRYING [None]
  - DRUG DOSE OMISSION [None]
  - INSOMNIA [None]
  - MANIA [None]
  - MENTAL DISORDER [None]
  - WRONG TECHNIQUE IN DRUG USAGE PROCESS [None]
